FAERS Safety Report 24671360 (Version 1)
Quarter: 2024Q4

REPORT INFORMATION
  Report Type: Spontaneous
  Country: US (occurrence: None)
  Receive Date: 20241127
  Receipt Date: 20241127
  Transmission Date: 20250115
  Serious: Yes (Disabling, Other)
  Sender: Public
  Company Number: None

PATIENT
  Age: 70 Year
  Sex: Male
  Weight: 81.6 kg

DRUGS (7)
  1. REPATHA [Suspect]
     Active Substance: EVOLOCUMAB
     Indication: Blood cholesterol increased
     Dosage: 1 INJECTION 1 EVERY 2 WEEKS SUBCUTANEOUS
     Route: 058
     Dates: start: 20241114, end: 20241127
  2. COREG [Concomitant]
     Active Substance: CARVEDILOL
  3. COENZYME Q10 [Concomitant]
     Active Substance: DIETARY SUPPLEMENT\UBIDECARENONE
  4. ASPIRIN [Concomitant]
     Active Substance: ASPIRIN
  5. MAGNEBIND [Concomitant]
  6. SENNA [Concomitant]
     Active Substance: SENNA LEAF\SENNOSIDES\SENNOSIDES A AND B
  7. Rena-Vite Tablet [Concomitant]

REACTIONS (3)
  - Deafness unilateral [None]
  - Nasal congestion [None]
  - Tinnitus [None]

NARRATIVE: CASE EVENT DATE: 20241127
